FAERS Safety Report 4953380-2 (Version None)
Quarter: 2006Q1

REPORT INFORMATION
  Report Type: 
  Country: None (occurrence: None)
  Receive Date: 20060324
  Receipt Date: 20060208
  Transmission Date: 20060701
  Serious: Yes (Disabling)
  Sender: FDA-Public Use
  Company Number: JP-SANOFI-SYNTHELABO-A01200601117

PATIENT
  Sex: Female
  Weight: 57 kg

DRUGS (13)
  1. OXALIPLATIN [Suspect]
     Dosage: 130 MG/BODY
     Route: 042
     Dates: start: 20060206, end: 20060206
  2. FLUOROURACIL [Suspect]
     Dosage: 1500 MG/BODY=1006.7 MG/M2 AS INFUSION
     Route: 042
     Dates: start: 20060206, end: 20060206
  3. ISOVORIN [Suspect]
     Dosage: 150 MG/BODY
     Route: 042
     Dates: start: 20060206, end: 20060206
  4. KYTRIL [Concomitant]
     Route: 042
     Dates: start: 20060206, end: 20060206
  5. DECADRON SRC [Concomitant]
     Route: 042
     Dates: start: 20060206, end: 20060208
  6. MAGNESIUM OXIDE [Concomitant]
     Route: 048
     Dates: start: 20040801
  7. FAMOTIDINE [Concomitant]
     Route: 048
     Dates: start: 20040801
  8. HIBON [Concomitant]
     Route: 048
     Dates: start: 20040801
  9. CINAL [Concomitant]
     Route: 048
     Dates: start: 20040801
  10. PYRIDOXAL PHOSPHATE [Concomitant]
     Route: 048
     Dates: start: 20040801
  11. PREDONINE [Concomitant]
     Route: 048
     Dates: start: 20040904
  12. MYSLEE [Concomitant]
     Route: 048
     Dates: start: 20060112, end: 20060223
  13. SOLITA-T NO. 3 [Concomitant]
     Dosage: UNK
     Route: 042
     Dates: start: 20060207

REACTIONS (4)
  - INJECTION SITE PARAESTHESIA [None]
  - PYREXIA [None]
  - RASH [None]
  - TOXIC SKIN ERUPTION [None]
